FAERS Safety Report 6824023-8 (Version None)
Quarter: 2010Q3

REPORT INFORMATION
  Report Type: 
  Country: None (occurrence: None)
  Receive Date: 20100708
  Receipt Date: 20061130
  Transmission Date: 20110219
  Serious: No
  Sender: FDA-Public Use
  Company Number: US-PFIZER INC-2006113295

PATIENT
  Sex: Female
  Weight: 56.7 kg

DRUGS (12)
  1. CHANTIX [Suspect]
     Indication: SMOKING CESSATION THERAPY
     Route: 048
     Dates: start: 20060916
  2. ALPRAZOLAM [Interacting]
     Indication: PANIC ATTACK
     Route: 048
  3. ALPRAZOLAM [Interacting]
     Indication: GENERALISED ANXIETY DISORDER
  4. ADVAIR DISKUS 100/50 [Concomitant]
  5. MEDROL [Concomitant]
  6. LIPITOR [Concomitant]
  7. PLAQUENIL [Concomitant]
  8. NEXIUM [Concomitant]
  9. DYAZIDE [Concomitant]
  10. PEPCID [Concomitant]
  11. INOSINE MONOPHOSPHATE DISODIUM [Concomitant]
  12. FOSAMAX [Concomitant]

REACTIONS (3)
  - DRUG INEFFECTIVE [None]
  - DRUG INTERACTION [None]
  - SOMNOLENCE [None]
